FAERS Safety Report 8115474-2 (Version None)
Quarter: 2012Q1

REPORT INFORMATION
  Report Type: 
  Country: None (occurrence: None)
  Receive Date: 20120206
  Receipt Date: 20120123
  Transmission Date: 20120608
  Serious: Yes (Hospitalization)
  Sender: FDA-Public Use
  Company Number: US-OPTIMER-20120012

PATIENT

DRUGS (4)
  1. ASPIRIN [Concomitant]
     Dosage: UNK
     Dates: start: 20110101
  2. DIGOXIN [Concomitant]
     Dosage: UNK
     Dates: start: 20110101
  3. DIFICID [Suspect]
     Indication: CLOSTRIDIAL INFECTION
     Dosage: UNK
     Route: 065
     Dates: start: 20111101, end: 20111101
  4. MAGNESIUM [Concomitant]
     Dosage: UNK
     Dates: start: 20110101

REACTIONS (8)
  - RECTAL HAEMORRHAGE [None]
  - DISEASE RECURRENCE [None]
  - VOMITING [None]
  - PSEUDOMEMBRANOUS COLITIS [None]
  - CLOSTRIDIAL INFECTION [None]
  - DIARRHOEA [None]
  - DEHYDRATION [None]
  - NAUSEA [None]
